FAERS Safety Report 11070083 (Version 1)
Quarter: 2015Q2

REPORT INFORMATION
  Report Type: Spontaneous
  Country: SE (occurrence: SE)
  Receive Date: 20150427
  Receipt Date: 20150427
  Transmission Date: 20150821
  Serious: Yes (Life-Threatening)
  Sender: FDA-Public Use
  Company Number: SE-TEVA-556935ISR

PATIENT
  Age: 25 Year
  Sex: Female

DRUGS (1)
  1. CITALOPRAM [Suspect]
     Active Substance: CITALOPRAM HYDROBROMIDE

REACTIONS (6)
  - Somnolence [Recovered/Resolved]
  - Muscle spasms [Recovered/Resolved]
  - Metabolic acidosis [Recovered/Resolved]
  - Suicidal ideation [Recovered/Resolved]
  - Dyspnoea [Recovered/Resolved]
  - Toxicity to various agents [Recovered/Resolved]
